FAERS Safety Report 4837782-0 (Version None)
Quarter: 2005Q4

REPORT INFORMATION
  Report Type: 
  Country: None (occurrence: None)
  Receive Date: 20051128
  Receipt Date: 20051117
  Transmission Date: 20060501
  Serious: Yes (Hospitalization, Disabling)
  Sender: FDA-Public Use
  Company Number: US-MERCK-0511USA03280

PATIENT
  Age: 34 Year
  Sex: Female
  Weight: 86 kg

DRUGS (4)
  1. VIOXX [Suspect]
     Indication: SPONDYLITIS
     Route: 048
     Dates: start: 20021006, end: 20030301
  2. ULTRAM [Concomitant]
     Route: 065
  3. VICODIN [Concomitant]
     Route: 065
  4. IBUPROFEN [Concomitant]
     Route: 065

REACTIONS (7)
  - BIPOLAR DISORDER [None]
  - BLOOD DISORDER [None]
  - CORONARY ARTERY DISEASE [None]
  - DEPRESSION [None]
  - HEAD INJURY [None]
  - MYOCARDIAL INFARCTION [None]
  - OVERDOSE [None]
